FAERS Safety Report 10477371 (Version 3)
Quarter: 2018Q2

REPORT INFORMATION
  Report Type: Report from Study
  Country: CH (occurrence: CH)
  Receive Date: 20140926
  Receipt Date: 20180531
  Transmission Date: 20180711
  Serious: Yes (Other)
  Sender: FDA-Public Use
  Company Number: CH-BAYER-2014-141134

PATIENT
  Sex: Female

DRUGS (4)
  1. BETAFERON [Suspect]
     Active Substance: INTERFERON BETA-1B
     Indication: MULTIPLE SCLEROSIS
     Dosage: 250 ?G, QOD
     Dates: start: 19990101
  2. ATENIL [Concomitant]
     Active Substance: ATENOLOL
  3. COVERSUM [Concomitant]
     Active Substance: PERINDOPRIL
  4. LIORESAL [Concomitant]
     Active Substance: BACLOFEN

REACTIONS (4)
  - Ultrasound bladder abnormal [None]
  - Urinary incontinence [Not Recovered/Not Resolved]
  - Injection site induration [Not Recovered/Not Resolved]
  - Nocturia [Not Recovered/Not Resolved]
